FAERS Safety Report 7203604-6 (Version None)
Quarter: 2010Q4

REPORT INFORMATION
  Report Type: 
  Country: None (occurrence: None)
  Receive Date: 20101228
  Receipt Date: 20101228
  Transmission Date: 20110411
  Serious: Yes (Hospitalization)
  Sender: FDA-Public Use
  Company Number: None

PATIENT
  Age: 72 Year
  Sex: Female
  Weight: 58 kg

DRUGS (1)
  1. HYDROCHLOROTHIAZIDE [Suspect]
     Dosage: 12.5MG DAILY PO
     Route: 048

REACTIONS (2)
  - BLOOD SODIUM DECREASED [None]
  - CHEST PAIN [None]
